FAERS Safety Report 24035513 (Version 4)
Quarter: 2024Q3

REPORT INFORMATION
  Report Type: Report from Study
  Country: DE (occurrence: DE)
  Receive Date: 20240701
  Receipt Date: 20240822
  Transmission Date: 20241017
  Serious: Yes (Hospitalization)
  Sender: PFIZER
  Company Number: DE-PFIZER INC-PV202400083979

PATIENT
  Age: 81 Year
  Sex: Female
  Weight: 70 kg

DRUGS (4)
  1. PALBOCICLIB [Suspect]
     Active Substance: PALBOCICLIB
     Indication: Breast cancer
     Dosage: 125 MG, DAILY FROM  DAY 1 TO DAY 21 EVERY 28 DAY CYCLE
     Route: 048
     Dates: start: 20211129, end: 20220213
  2. PALBOCICLIB [Suspect]
     Active Substance: PALBOCICLIB
     Dosage: 100 MG, DAILY FROM DAY 1 TO DAY 21 EVERY 28 DAY CYCLE
     Route: 048
     Dates: start: 20211004, end: 20240619
  3. ANASTROZOLE [Suspect]
     Active Substance: ANASTROZOLE
     Indication: Breast cancer
     Dosage: 1 MG, DAILY
     Route: 048
     Dates: start: 20211004, end: 20211031
  4. LETROZOLE [Suspect]
     Active Substance: LETROZOLE
     Indication: Breast cancer
     Dosage: 2.5 MG, DAILY
     Route: 048
     Dates: start: 20211101

REACTIONS (1)
  - Hypertension [Recovered/Resolved]

NARRATIVE: CASE EVENT DATE: 20240619
